FAERS Safety Report 18561692 (Version 2)
Quarter: 2021Q1

REPORT INFORMATION
  Report Type: Spontaneous
  Country: CN (occurrence: CN)
  Receive Date: 20201130
  Receipt Date: 20210128
  Transmission Date: 20210419
  Serious: Yes (Other)
  Sender: FDA-Public Use
  Company Number: CN-PURDUE-USA-2020-0180062

PATIENT
  Age: 43 Year
  Sex: Female

DRUGS (12)
  1. MORPHINE SULFATE (SIMILAR TO NDA 19?516) [Suspect]
     Active Substance: MORPHINE SULFATE
     Dosage: 90 MG, Q12H (ADJUSTED DOSE ON DAY 2 AND INITIAL DOSAGE OF EXTENDED RELEASE, DAY 3)
     Route: 048
     Dates: start: 20190314
  2. MORPHINE SULFATE (SIMILAR TO NDA 19?516) [Suspect]
     Active Substance: MORPHINE SULFATE
     Dosage: 60 MG, UNK (FOR BTP RELIEF, ON DAY 1)
     Route: 048
     Dates: start: 20190312
  3. MORPHINE [Suspect]
     Active Substance: MORPHINE
     Dosage: 480 MG, DAILY
     Route: 041
     Dates: start: 2019, end: 2019
  4. MORPHINE SULFATE (SIMILAR TO NDA 19?516) [Suspect]
     Active Substance: MORPHINE SULFATE
     Dosage: 150 MG, Q12H (ADJUSTED DOSE ON DAY 3 AND INITIAL DOSAGE OF EXTENDED RELEASE, DAY 4)
     Route: 048
     Dates: start: 20190315
  5. MORPHINE SULFATE (SIMILAR TO NDA 19?516) [Suspect]
     Active Substance: MORPHINE SULFATE
     Dosage: 120 MG, UNK (FOR BTP RELIEF, ON DAY 2, 3)
     Route: 048
     Dates: start: 20190313
  6. MORPHINE [Suspect]
     Active Substance: MORPHINE
     Indication: CANCER PAIN
     Dosage: 5 MG, UNK (DAY 1)
     Route: 065
     Dates: start: 20190312
  7. MORPHINE SULFATE (SIMILAR TO NDA 19?516) [Suspect]
     Active Substance: MORPHINE SULFATE
     Dosage: 240 MG, Q12H (ADJUSTED DOSE ON DAY 4 AND INITIAL DOSAGE OF EXTENDED RELEASE, DAY 4)
     Route: 048
     Dates: start: 20190316
  8. MORPHINE SULFATE (SIMILAR TO NDA 19?516) [Suspect]
     Active Substance: MORPHINE SULFATE
     Indication: CANCER PAIN
     Dosage: 30 MG, UNK (FOR BTP RELIEF, ON DAY 6, 7)
     Route: 048
     Dates: start: 20190317
  9. MORPHINE [Suspect]
     Active Substance: MORPHINE
     Indication: CANCER PAIN
     Dosage: 240 MG, DAILY
     Route: 041
     Dates: start: 2019, end: 2019
  10. MORPHINE SULFATE (SIMILAR TO NDA 19?516) [Suspect]
     Active Substance: MORPHINE SULFATE
     Dosage: 150 MG, Q12H (ADJUSTED DOSE ON DAY 3 AND INITIAL DOSAGE OF EXTENDED RELEASE, DAY 4)
     Route: 048
     Dates: start: 20190315
  11. MORPHINE SULFATE (SIMILAR TO NDA 19?516) [Suspect]
     Active Substance: MORPHINE SULFATE
     Dosage: 30 MG, UNK (FOR BTP RELIEF, ON DAY 6, 7)
     Route: 048
     Dates: start: 20190317
  12. MORPHINE SULFATE (SIMILAR TO NDA 19?516) [Suspect]
     Active Substance: MORPHINE SULFATE
     Dosage: 120 MG, UNK (FOR BTP RELIEF, ON DAY 2, 3)
     Route: 048
     Dates: start: 20190313

REACTIONS (9)
  - Urinary retention [Unknown]
  - Pruritus [Unknown]
  - Constipation [Unknown]
  - Vomiting [Unknown]
  - Hypoaesthesia [Unknown]
  - Drug intolerance [Unknown]
  - Lethargy [Unknown]
  - Nausea [Unknown]
  - Muscle strength abnormal [Recovered/Resolved]

NARRATIVE: CASE EVENT DATE: 2019
